FAERS Safety Report 20165447 (Version 1)
Quarter: 2021Q4

REPORT INFORMATION
  Report Type: Spontaneous
  Country: IT (occurrence: None)
  Receive Date: 20211209
  Receipt Date: 20211209
  Transmission Date: 20220303
  Serious: Yes (Hospitalization)
  Sender: FDA-Public Use
  Company Number: 2021A849529

PATIENT
  Age: 73 Year
  Sex: Male
  Weight: 85 kg

DRUGS (1)
  1. ROSUVASTATIN CALCIUM [Suspect]
     Active Substance: ROSUVASTATIN CALCIUM
     Indication: Infarction
     Route: 048
     Dates: start: 20211025, end: 20211105

REACTIONS (2)
  - Acute kidney injury [Recovering/Resolving]
  - Rhabdomyolysis [Recovering/Resolving]

NARRATIVE: CASE EVENT DATE: 20211101
